FAERS Safety Report 25476347 (Version 1)
Quarter: 2025Q2

REPORT INFORMATION
  Report Type: Spontaneous
  Country: BR (occurrence: BR)
  Receive Date: 20250625
  Receipt Date: 20250625
  Transmission Date: 20250716
  Serious: Yes (Hospitalization, Other)
  Sender: NOVO NORDISK
  Company Number: BR-NOVOPROD-1463154

PATIENT
  Age: 619 Month
  Sex: Female

DRUGS (1)
  1. WEGOVY [Suspect]
     Active Substance: SEMAGLUTIDE
     Indication: Product used for unknown indication
     Dates: start: 20250607

REACTIONS (10)
  - Malaise [Unknown]
  - Blood pressure increased [Unknown]
  - Asthenia [Unknown]
  - Body temperature increased [Unknown]
  - Dry mouth [Unknown]
  - Blood pressure decreased [Unknown]
  - Mental disorder [Unknown]
  - Nervous system disorder [Unknown]
  - Paraesthesia [Unknown]
  - Off label use [Unknown]

NARRATIVE: CASE EVENT DATE: 20250607
